FAERS Safety Report 8574789-4 (Version None)
Quarter: 2012Q3

REPORT INFORMATION
  Report Type: 
  Country: None (occurrence: None)
  Receive Date: 20120807
  Receipt Date: 20120731
  Transmission Date: 20120928
  Serious: Yes (Hospitalization)
  Sender: FDA-Public Use
  Company Number: US-009507513-2009-199327-NL

PATIENT

DRUGS (6)
  1. XANAX [Concomitant]
     Indication: SLEEP DISORDER
     Dosage: 2 MG, BID
     Dates: start: 20060401
  2. XANAX [Concomitant]
     Indication: ANXIETY
  3. NUVARING [Suspect]
     Indication: CONTRACEPTION
     Dosage: CONTINUING: NO
     Route: 067
     Dates: start: 20060301, end: 20060801
  4. EFFEXOR [Concomitant]
     Indication: PRODUCT USED FOR UNKNOWN INDICATION
  5. PERCOCET [Concomitant]
     Indication: PRODUCT USED FOR UNKNOWN INDICATION
  6. TOPAMAX [Concomitant]
     Indication: PRODUCT USED FOR UNKNOWN INDICATION

REACTIONS (18)
  - ENDOMETRIOSIS [None]
  - HAEMORRHOIDS [None]
  - ANOVULATORY CYCLE [None]
  - LUTEAL PHASE DEFICIENCY [None]
  - DYSPEPSIA [None]
  - SINUSITIS [None]
  - INSOMNIA [None]
  - PELVIC ADHESIONS [None]
  - DEEP VEIN THROMBOSIS [None]
  - UPPER-AIRWAY COUGH SYNDROME [None]
  - VIRAL UPPER RESPIRATORY TRACT INFECTION [None]
  - PAIN [None]
  - HYPERSOMNIA [None]
  - HAEMATEMESIS [None]
  - MUSCLE SPASMS [None]
  - LYMPHADENITIS BACTERIAL [None]
  - TENDONITIS [None]
  - GASTROOESOPHAGEAL REFLUX DISEASE [None]
